FAERS Safety Report 19659198 (Version 2)
Quarter: 2021Q3

REPORT INFORMATION
  Report Type: Other
  Country: KR (occurrence: KR)
  Receive Date: 20210805
  Receipt Date: 20210819
  Transmission Date: 20211014
  Serious: Yes (Other)
  Sender: FDA-Public Use
  Company Number: KR-ROCHE-2884331

PATIENT
  Age: 45 Year
  Sex: Male
  Weight: 70 kg

DRUGS (10)
  1. EMICIZUMAB. [Suspect]
     Active Substance: EMICIZUMAB
     Route: 058
     Dates: start: 20210504, end: 20210524
  2. NOVOSEVEN RT [Concomitant]
     Active Substance: COAGULATION FACTOR VIIA RECOMBINANT HUMAN
     Indication: OEDEMA PERIPHERAL
  3. NOVOSEVEN RT [Concomitant]
     Active Substance: COAGULATION FACTOR VIIA RECOMBINANT HUMAN
     Indication: ARTHRALGIA
  4. EMICIZUMAB. [Suspect]
     Active Substance: EMICIZUMAB
     Route: 058
     Dates: start: 20210129, end: 20210503
  5. EMICIZUMAB. [Suspect]
     Active Substance: EMICIZUMAB
     Indication: HAEMOPHILIA A WITH ANTI FACTOR VIII
     Route: 058
     Dates: start: 20201118, end: 20201215
  6. EMICIZUMAB. [Suspect]
     Active Substance: EMICIZUMAB
     Route: 058
     Dates: start: 20201216, end: 20210128
  7. NOVOSEVEN RT [Concomitant]
     Active Substance: COAGULATION FACTOR VIIA RECOMBINANT HUMAN
     Indication: HAEMARTHROSIS
     Dosage: 100 KILO?INTERNATIONAL UNIT, PRN
     Route: 042
     Dates: start: 20201123, end: 20210308
  8. EMICIZUMAB. [Suspect]
     Active Substance: EMICIZUMAB
     Route: 058
     Dates: start: 20210525
  9. TRIDOL [Concomitant]
     Active Substance: TRAMADOL HYDROCHLORIDE
     Indication: PAIN MANAGEMENT
     Dosage: 50 MILLIGRAM
     Route: 042
     Dates: start: 20210317, end: 20210317
  10. PETHIDINE HCL [Concomitant]
     Indication: PAIN MANAGEMENT
     Dosage: 75 MILLIGRAM
     Route: 042
     Dates: start: 20201118, end: 20201118

REACTIONS (1)
  - Haemarthrosis [Recovered/Resolved]

NARRATIVE: CASE EVENT DATE: 20210727
